FAERS Safety Report 10276697 (Version 2)
Quarter: 2014Q3

REPORT INFORMATION
  Report Type: Report from Study
  Country: US (occurrence: US)
  Receive Date: 20140703
  Receipt Date: 20140703
  Transmission Date: 20150326
  Serious: Yes (Other)
  Sender: FDA-Public Use
  Company Number: US-ASTRAZENECA-2012SE93538

PATIENT
  Age: 67 Year
  Sex: Female
  Weight: 90.7 kg

DRUGS (37)
  1. NITRO-QUIK/NITROGLYCERIN [Concomitant]
     Indication: CHEST PAIN
     Dates: start: 201204
  2. RESTASIS EYE DROPS [Concomitant]
     Indication: DRY EYE
     Dosage: 1 DROP BOTH EYES BID
     Route: 050
  3. EXTRA STRENGHT TYLENOL [Concomitant]
     Indication: FIBROMYALGIA
     Route: 048
  4. EXTRA STRENGHT TYLENOL [Concomitant]
     Indication: ARTHRITIS
     Route: 048
  5. PREDNISONE SODIUM PHOSPHATE OPTHAMALIC SOLUTION [Concomitant]
     Indication: DRY EYE
     Dosage: 1 DROP BOTH EYES QID
     Route: 050
  6. METOPROLOL SUCCINATE (NON AZ DRUG) [Suspect]
     Active Substance: METOPROLOL SUCCINATE
     Route: 048
     Dates: start: 2007
  7. CLONAZEPAM. [Concomitant]
     Active Substance: CLONAZEPAM
     Indication: ANXIETY
     Route: 048
  8. EXTRA STRENGHT TYLENOL [Concomitant]
     Indication: ARTHRALGIA
     Route: 048
  9. NITROFURANTOIN MACROCRYSTALS [Concomitant]
     Active Substance: NITROFURANTOIN
     Indication: CYSTITIS
     Route: 048
     Dates: start: 2012
  10. SEROQUEL [Suspect]
     Active Substance: QUETIAPINE FUMARATE
     Indication: SLEEP DISORDER
     Route: 048
  11. SEROQUEL [Suspect]
     Active Substance: QUETIAPINE FUMARATE
     Indication: SLEEP DISORDER
     Route: 048
     Dates: start: 2014
  12. PAROXETINE [Concomitant]
     Active Substance: PAROXETINE\PAROXETINE HYDROCHLORIDE
     Indication: ANXIETY
     Route: 048
     Dates: start: 2012
  13. ISOSORBIDE MONONITRATE. [Concomitant]
     Active Substance: ISOSORBIDE MONONITRATE
     Route: 048
     Dates: start: 2007
  14. METOPROLOL [Concomitant]
     Active Substance: METOPROLOL
     Dates: start: 201204
  15. SPIRONOLACTONE. [Concomitant]
     Active Substance: SPIRONOLACTONE
     Indication: OEDEMA
     Dates: start: 201204
  16. NITRO-QUIK/NITROGLYCERIN [Concomitant]
     Indication: CHEST PAIN
     Dosage: AS REQUIRED
     Route: 050
     Dates: start: 2007
  17. HYDROCODONE ACETAMINOPHEN [Concomitant]
     Active Substance: ACETAMINOPHEN\HYDROCODONE BITARTRATE
     Indication: FIBROMYALGIA
     Dosage: 5-500MG PRN
     Route: 048
  18. PROCTOSOL [Concomitant]
     Indication: HAEMORRHOIDS
     Dosage: AS REQUIRED
     Route: 048
  19. CRESTOR [Suspect]
     Active Substance: ROSUVASTATIN CALCIUM
     Indication: MYOCARDIAL INFARCTION
     Route: 048
     Dates: start: 20070831
  20. PAROXETINE [Concomitant]
     Active Substance: PAROXETINE\PAROXETINE HYDROCHLORIDE
     Indication: ANXIETY
     Dates: start: 201204
  21. ASPIRIN/ASA [Concomitant]
     Active Substance: ASCORBIC ACID\ASPIRIN
     Indication: ISCHAEMIC HEART DISEASE PROPHYLAXIS
     Route: 048
     Dates: start: 2007
  22. EXTRA STRENGHT TYLENOL [Concomitant]
     Indication: ARTHRALGIA
     Route: 048
  23. ISOSORBIDE MONONITRATE. [Concomitant]
     Active Substance: ISOSORBIDE MONONITRATE
     Dates: start: 201204
  24. HYDROCODONE ACETAMINOPHEN [Concomitant]
     Active Substance: ACETAMINOPHEN\HYDROCODONE BITARTRATE
     Indication: ARTHRITIS
     Dosage: 5-500MG PRN
     Route: 048
  25. FISH OIL [Concomitant]
     Active Substance: FISH OIL
     Dosage: 1200 DAILY
     Route: 048
  26. VITAMIN D3 [Concomitant]
     Active Substance: CHOLECALCIFEROL
     Dosage: 2000 UNITS DAILY
     Route: 048
  27. LISINOPRIL. [Suspect]
     Active Substance: LISINOPRIL
     Route: 048
     Dates: start: 2007
  28. METHYLPHENATE [Concomitant]
     Dates: start: 201204
  29. PAROXETINE [Concomitant]
     Active Substance: PAROXETINE\PAROXETINE HYDROCHLORIDE
     Indication: DEPRESSION
     Route: 048
     Dates: start: 2012
  30. HYDROCODONE ACETAMINOPHEN [Concomitant]
     Active Substance: ACETAMINOPHEN\HYDROCODONE BITARTRATE
     Indication: ARTHRALGIA
     Dosage: 5-500MG PRN
     Route: 048
  31. AMOXICILLIN. [Concomitant]
     Active Substance: AMOXICILLIN
     Indication: TOOTH DISORDER
     Route: 048
  32. PAROXETINE [Concomitant]
     Active Substance: PAROXETINE\PAROXETINE HYDROCHLORIDE
     Indication: DEPRESSION
     Dates: start: 201204
  33. MVI [Concomitant]
     Active Substance: VITAMINS
     Dosage: DAILY
     Route: 048
  34. SPIRONOLACTONE. [Concomitant]
     Active Substance: SPIRONOLACTONE
     Indication: OEDEMA
     Route: 048
  35. HYDROCODONE ACETAMINOPHEN [Concomitant]
     Active Substance: ACETAMINOPHEN\HYDROCODONE BITARTRATE
     Indication: ARTHRALGIA
     Dosage: 5-500MG PRN
     Route: 048
  36. VESICARE [Concomitant]
     Active Substance: SOLIFENACIN SUCCINATE
     Indication: INCONTINENCE
     Route: 048
     Dates: start: 2013
  37. TURMERIC [Concomitant]
     Active Substance: TURMERIC
     Indication: INFLAMMATION
     Dosage: DAILY
     Route: 048

REACTIONS (11)
  - Myocardial infarction [Not Recovered/Not Resolved]
  - Cataract [Recovered/Resolved]
  - Sinusitis [Recovering/Resolving]
  - Intentional product misuse [Not Recovered/Not Resolved]
  - Arthralgia [None]
  - Arthralgia [Not Recovered/Not Resolved]
  - Insomnia [Recovered/Resolved]
  - Breast mass [Unknown]
  - Drug dose omission [Recovered/Resolved]
  - Cystitis [None]
  - Weight increased [Not Recovered/Not Resolved]

NARRATIVE: CASE EVENT DATE: 2007
